FAERS Safety Report 20144530 (Version 1)
Quarter: 2021Q4

REPORT INFORMATION
  Report Type: Spontaneous
  Country: US (occurrence: None)
  Receive Date: 20211202
  Receipt Date: 20211202
  Transmission Date: 20220303
  Serious: No
  Sender: FDA-Public Use
  Company Number: None

PATIENT
  Age: 64 Year
  Sex: Male
  Weight: 81 kg

DRUGS (1)
  1. HYDROCHLOROTHIAZIDE [Suspect]
     Active Substance: HYDROCHLOROTHIAZIDE
     Indication: Hypertension
     Dosage: FREQUENCY : DAILY;?
     Route: 048
     Dates: start: 20201203, end: 20210118

REACTIONS (8)
  - Dyspnoea [None]
  - Nausea [None]
  - Retching [None]
  - Blood urea increased [None]
  - Blood creatinine increased [None]
  - Blood potassium increased [None]
  - Acute kidney injury [None]
  - Dehydration [None]

NARRATIVE: CASE EVENT DATE: 20210714
